FAERS Safety Report 21927212 (Version 1)
Quarter: 2023Q1

REPORT INFORMATION
  Report Type: Report from Study
  Country: AR (occurrence: AR)
  Receive Date: 20230130
  Receipt Date: 20230130
  Transmission Date: 20230418
  Serious: Yes (Hospitalization)
  Sender: FDA-Public Use
  Company Number: AR-002147023-NVSC2023AR018861

PATIENT
  Age: 44 Year
  Sex: Female

DRUGS (1)
  1. TASIGNA [Suspect]
     Active Substance: NILOTINIB
     Indication: Chronic myeloid leukaemia
     Dosage: 600 MG, QD
     Route: 048
     Dates: start: 20211124

REACTIONS (9)
  - Ovarian cyst ruptured [Unknown]
  - Endometriosis [Unknown]
  - Premature menopause [Unknown]
  - Dysmenorrhoea [Unknown]
  - Lymphadenitis [Unknown]
  - Pain [Unknown]
  - Nodule [Unknown]
  - COVID-19 [Unknown]
  - Inappropriate schedule of product administration [Unknown]

NARRATIVE: CASE EVENT DATE: 20220201
